FAERS Safety Report 4541754-3 (Version None)
Quarter: 2004Q4

REPORT INFORMATION
  Report Type: 
  Country: None (occurrence: None)
  Receive Date: 20041230
  Receipt Date: 20040827
  Transmission Date: 20050328
  Serious: Yes (Hospitalization)
  Sender: FDA-Public Use
  Company Number: 200412775JP

PATIENT
  Age: 80 Year
  Sex: Female

DRUGS (7)
  1. ALLEGRA [Suspect]
     Indication: URTICARIA
     Route: 048
     Dates: start: 20040721, end: 20040727
  2. ATARAX [Suspect]
     Indication: PRURITUS
     Route: 048
     Dates: start: 20040721, end: 20040724
  3. ANTIDIARRHOEAL MICROORGANISMS [Concomitant]
     Route: 048
     Dates: start: 19950101
  4. EXCELASE [Concomitant]
     Dates: start: 19950101
  5. MARZULENE S [Concomitant]
     Dates: start: 19950101
  6. MAGLAX [Concomitant]
     Dates: start: 19950101
  7. ABOVIS [Concomitant]
     Dates: start: 19950101

REACTIONS (11)
  - ALANINE AMINOTRANSFERASE INCREASED [None]
  - ANOREXIA [None]
  - ASPARTATE AMINOTRANSFERASE INCREASED [None]
  - BILIRUBIN CONJUGATED INCREASED [None]
  - BLOOD ALKALINE PHOSPHATASE INCREASED [None]
  - BLOOD BILIRUBIN INCREASED [None]
  - BLOOD LACTATE DEHYDROGENASE INCREASED [None]
  - FATIGUE [None]
  - HEPATIC FUNCTION ABNORMAL [None]
  - MALAISE [None]
  - RASH [None]
